FAERS Safety Report 14144467 (Version 1)
Quarter: 2017Q4

REPORT INFORMATION
  Report Type: Spontaneous
  Country: HR (occurrence: HR)
  Receive Date: 20171031
  Receipt Date: 20171031
  Transmission Date: 20180321
  Serious: Yes (Hospitalization)
  Sender: FDA-Public Use
  Company Number: HR-ROCHE-2012658

PATIENT
  Age: 61 Year
  Sex: Female

DRUGS (1)
  1. ROACTEMRA [Suspect]
     Active Substance: TOCILIZUMAB
     Indication: RHEUMATOID ARTHRITIS
     Route: 042
     Dates: start: 20121113, end: 20170713

REACTIONS (3)
  - Oedema peripheral [Unknown]
  - Erythema [Unknown]
  - Skin infection [Unknown]

NARRATIVE: CASE EVENT DATE: 20170807
